FAERS Safety Report 4999072-5 (Version None)
Quarter: 2006Q2

REPORT INFORMATION
  Report Type: 
  Country: None (occurrence: None)
  Receive Date: 20060509
  Receipt Date: 20060418
  Transmission Date: 20061013
  Serious: Yes (Hospitalization, Other)
  Sender: FDA-Public Use
  Company Number: US200603006644

PATIENT
  Sex: Female

DRUGS (8)
  1. HUMULIN L [Suspect]
     Indication: DIABETES MELLITUS
     Dates: end: 20050101
  2. HUMULIN R [Suspect]
     Indication: DIABETES MELLITUS
     Dosage: 8 U, 2/D,
  3. HUMULIN N [Suspect]
     Indication: DIABETES MELLITUS
     Dosage: SEE IMAGE
  4. FORTEO [Suspect]
     Indication: BONE DENSITY DECREASED
     Dosage: 20 UG, DAILY (1/D),
     Dates: start: 20060301
  5. FORTEO [Concomitant]
  6. SYNTHROID [Concomitant]
  7. PRILOSEC [Concomitant]
  8. PLAVIX [Concomitant]

REACTIONS (13)
  - ANKLE FRACTURE [None]
  - ARTHRALGIA [None]
  - BACK DISORDER [None]
  - BACK PAIN [None]
  - BLOOD GLUCOSE DECREASED [None]
  - CEREBROVASCULAR ACCIDENT [None]
  - COGNITIVE DISORDER [None]
  - FALL [None]
  - LOWER LIMB FRACTURE [None]
  - MOBILITY DECREASED [None]
  - OSTEOPOROSIS [None]
  - STOMACH DISCOMFORT [None]
  - VISUAL ACUITY REDUCED [None]
